FAERS Safety Report 8007519-5 (Version None)
Quarter: 2011Q4

REPORT INFORMATION
  Report Type: 
  Country: None (occurrence: None)
  Receive Date: 20111221
  Receipt Date: 20111206
  Transmission Date: 20120403
  Serious: Yes (Hospitalization, Other)
  Sender: FDA-Public Use
  Company Number: AEUSA201100317

PATIENT
  Age: 35 Year
  Sex: Female

DRUGS (9)
  1. GAMUNEX [Suspect]
     Indication: MYASTHENIA GRAVIS
     Dosage: UNKNOWN; IV
     Route: 042
     Dates: start: 20110901
  2. LEXAPRO UNKNOWN - UNKNOWN [Concomitant]
  3. NAPROSYN /00256201/ UNKNOWN - UNKNOWN [Concomitant]
  4. TYLENOL /00020001/ UNKNOWN - UNKNOWN [Concomitant]
  5. CYCLOBENZAPRINE UNKNOWN - UNKNOWN [Concomitant]
  6. FIORICET UNKNOWN - UNKNOWN [Concomitant]
  7. BENADRYL /00000402/ UNKNOWN - UNKNOWN [Concomitant]
  8. PREDNISONE UNKNOWN - UNKNOWN [Concomitant]
  9. CELLCEPT (PREV.) UNKNOWN - UNKNOWN [Concomitant]

REACTIONS (3)
  - PULMONARY EMBOLISM [None]
  - ANTIBODY TEST POSITIVE [None]
  - HAEMOLYSIS [None]
